FAERS Safety Report 4827488-6 (Version None)
Quarter: 2005Q4

REPORT INFORMATION
  Report Type: 
  Country: None (occurrence: None)
  Receive Date: 20051114
  Receipt Date: 20051102
  Transmission Date: 20060501
  Serious: Yes (Life-Threatening)
  Sender: FDA-Public Use
  Company Number: FR-SANOFI-SYNTHELABO-A02200502882

PATIENT
  Age: 39 Year
  Sex: Female
  Weight: 72 kg

DRUGS (1)
  1. MYTELASE [Suspect]
     Indication: MYASTHENIC SYNDROME
     Route: 048
     Dates: start: 20051006, end: 20051008

REACTIONS (4)
  - CARDIO-RESPIRATORY ARREST [None]
  - CEREBRAL DISORDER [None]
  - CHOLINERGIC SYNDROME [None]
  - PAIN [None]
